FAERS Safety Report 4331254-8 (Version None)
Quarter: 2004Q2

REPORT INFORMATION
  Report Type: 
  Country: None (occurrence: None)
  Receive Date: 20040402
  Receipt Date: 20040402
  Transmission Date: 20050107
  Serious: Yes (Other)
  Sender: FDA-Public Use
  Company Number: None

PATIENT
  Age: 22 Year
  Sex: Female
  Weight: 55.7924 kg

DRUGS (2)
  1. ACCUTANE [Suspect]
     Indication: ACNE
     Dosage: 40 MG BID ORAL
     Route: 048
     Dates: start: 19981201, end: 19890426
  2. ACCUTANE [Suspect]
     Indication: ACNE
     Dosage: 40 MG BID ORAL
     Route: 048
     Dates: start: 19891108, end: 19891222

REACTIONS (8)
  - ALOPECIA [None]
  - ARTHRALGIA [None]
  - DIABETES MELLITUS INSULIN-DEPENDENT [None]
  - EPISTAXIS [None]
  - FEELING ABNORMAL [None]
  - FUNGAL INFECTION [None]
  - HYPOGLYCAEMIA [None]
  - KERATOCONJUNCTIVITIS SICCA [None]
